FAERS Safety Report 7937780-4 (Version None)
Quarter: 2011Q4

REPORT INFORMATION
  Report Type: 
  Country: None (occurrence: None)
  Receive Date: 20111123
  Receipt Date: 20111118
  Transmission Date: 20120403
  Serious: Yes (Life-Threatening, Other)
  Sender: FDA-Public Use
  Company Number: PHEH2011US009854

PATIENT
  Age: 70 Year
  Sex: Female

DRUGS (15)
  1. FISH OIL [Concomitant]
  2. HYDROCORDON [Concomitant]
     Dosage: 10/325 MCG
  3. VITAMIN E [Concomitant]
  4. MULTI-VITAMINS [Concomitant]
  5. ASCORBIC ACID [Concomitant]
  6. OMEPRAZOLE [Concomitant]
  7. METAXALONE [Concomitant]
     Dosage: 800 MG, TWICE TO THRICE PER DAY
  8. VITAMIN B COMPLEX CAP [Concomitant]
  9. MELOXICAM [Concomitant]
     Dosage: 15 MG, BID
  10. CALCIUM [Concomitant]
  11. POTASSIUM [Concomitant]
  12. VITAMIN D [Concomitant]
  13. FLAX SEED [Concomitant]
  14. RECLAST [Suspect]
     Dosage: ONCE
     Route: 042
     Dates: start: 20111116
  15. MAGNESIUM SULFATE [Concomitant]

REACTIONS (5)
  - URINARY TRACT INFECTION [None]
  - FEELING ABNORMAL [None]
  - PARAESTHESIA [None]
  - FUNGAL INFECTION [None]
  - MUSCULOSKELETAL DISCOMFORT [None]
